FAERS Safety Report 5288442-6 (Version None)
Quarter: 2007Q1

REPORT INFORMATION
  Report Type: 
  Country: None (occurrence: None)
  Receive Date: 20070116
  Receipt Date: 20061018
  Transmission Date: 20070707
  Serious: No
  Sender: FDA-Public Use
  Company Number: 2006SP003726

PATIENT
  Age: 26 Year
  Sex: Male
  Weight: 113.3993 kg

DRUGS (2)
  1. LUNESTA [Suspect]
     Indication: INITIAL INSOMNIA
     Dosage: 3 MG; ORAL
     Route: 048
     Dates: start: 20061018
  2. PERCOCET [Concomitant]

REACTIONS (6)
  - DRUG INEFFECTIVE [None]
  - DYSGEUSIA [None]
  - FORMICATION [None]
  - HEADACHE [None]
  - INITIAL INSOMNIA [None]
  - MUSCLE TWITCHING [None]
